FAERS Safety Report 16351491 (Version 1)
Quarter: 2019Q2

REPORT INFORMATION
  Report Type: Spontaneous
  Country: CN (occurrence: CN)
  Receive Date: 20190524
  Receipt Date: 20190524
  Transmission Date: 20190711
  Serious: Yes (Other)
  Sender: FDA-Public Use
  Company Number: CN-ROCHE-2322442

PATIENT
  Age: 53 Year
  Sex: Male

DRUGS (12)
  1. RITUXIMAB. [Suspect]
     Active Substance: RITUXIMAB
     Indication: HIGH-GRADE B-CELL LYMPHOMA
     Route: 065
     Dates: start: 20170616
  2. CYCLOPHOSPHAMIDE. [Concomitant]
     Active Substance: CYCLOPHOSPHAMIDE
     Indication: HIGH-GRADE B-CELL LYMPHOMA
     Route: 065
     Dates: start: 20170616
  3. PREDNISOLONE. [Concomitant]
     Active Substance: PREDNISOLONE
     Indication: NON-HODGKIN^S LYMPHOMA
     Route: 065
     Dates: start: 20170228
  4. ETOPOSIDE. [Concomitant]
     Active Substance: ETOPOSIDE
     Indication: NON-HODGKIN^S LYMPHOMA
     Route: 065
     Dates: start: 20170616
  5. EPIRUBICIN [Concomitant]
     Active Substance: EPIRUBICIN
     Indication: NON-HODGKIN^S LYMPHOMA
     Route: 065
     Dates: start: 20170228
  6. PREDNISOLONE. [Concomitant]
     Active Substance: PREDNISOLONE
     Indication: HIGH-GRADE B-CELL LYMPHOMA
     Route: 065
     Dates: start: 20170616
  7. EPIRUBICIN [Concomitant]
     Active Substance: EPIRUBICIN
     Indication: HIGH-GRADE B-CELL LYMPHOMA
     Route: 065
     Dates: start: 20170616
  8. ETOPOSIDE. [Concomitant]
     Active Substance: ETOPOSIDE
     Indication: HIGH-GRADE B-CELL LYMPHOMA
  9. RITUXIMAB. [Suspect]
     Active Substance: RITUXIMAB
     Indication: NON-HODGKIN^S LYMPHOMA
     Dosage: DATE OF RITUXIMAB RECEIVED: 20/MAR/2017, 19/APR/2017 AND 15/MAY/2017
     Route: 065
     Dates: start: 20170228
  10. CYCLOPHOSPHAMIDE. [Concomitant]
     Active Substance: CYCLOPHOSPHAMIDE
     Indication: NON-HODGKIN^S LYMPHOMA
     Route: 065
     Dates: start: 20170228
  11. VINCRISTINE [Concomitant]
     Active Substance: VINCRISTINE
     Indication: NON-HODGKIN^S LYMPHOMA
     Route: 065
     Dates: start: 20170228
  12. VINCRISTINE [Concomitant]
     Active Substance: VINCRISTINE
     Indication: HIGH-GRADE B-CELL LYMPHOMA
     Route: 065
     Dates: start: 20170616

REACTIONS (3)
  - Pneumonitis [Unknown]
  - Cystic lung disease [Unknown]
  - Bone marrow failure [Unknown]
